FAERS Safety Report 14008283 (Version 2)
Quarter: 2017Q4

REPORT INFORMATION
  Report Type: Spontaneous
  Country: JP (occurrence: JP)
  Receive Date: 20170925
  Receipt Date: 20171023
  Transmission Date: 20180321
  Serious: Yes (Other)
  Sender: FDA-Public Use
  Company Number: JP-PFIZER INC-2017410205

PATIENT
  Age: 50 Year
  Sex: Male

DRUGS (2)
  1. CAMPTO [Suspect]
     Active Substance: IRINOTECAN
     Indication: ANAL CANCER
     Dosage: 90 MG/M2, 1X/DAY
     Route: 041
  2. TS-1 [Concomitant]
     Active Substance: GIMERACIL\OTERACIL\TEGAFUR
     Indication: ANAL CANCER
     Dosage: 80 MG, DAILY (80 MG/BODY)

REACTIONS (2)
  - Haematotoxicity [Unknown]
  - Diarrhoea [Unknown]
